FAERS Safety Report 22064533 (Version 1)
Quarter: 2023Q1

REPORT INFORMATION
  Report Type: Spontaneous
  Country: US (occurrence: US)
  Receive Date: 20230306
  Receipt Date: 20230306
  Transmission Date: 20230417
  Serious: No
  Sender: FDA-Public Use
  Company Number: US-PTC THERAPEUTICS, INC.-US-2022PTC000539

PATIENT
  Age: 31 Year
  Sex: Male

DRUGS (1)
  1. EMFLAZA [Suspect]
     Active Substance: DEFLAZACORT
     Indication: Product used for unknown indication
     Dosage: 48 MG
     Route: 065

REACTIONS (2)
  - Underdose [Unknown]
  - Product supply issue [Unknown]

NARRATIVE: CASE EVENT DATE: 20220317
